FAERS Safety Report 13833839 (Version 1)
Quarter: 2017Q3

REPORT INFORMATION
  Report Type: Spontaneous
  Country: FR (occurrence: FR)
  Receive Date: 20170804
  Receipt Date: 20170804
  Transmission Date: 20171127
  Serious: Yes (Death)
  Sender: FDA-Public Use
  Company Number: FR-SA-2017SA141756

PATIENT
  Age: 52 Year
  Sex: Male

DRUGS (2)
  1. XELODA [Suspect]
     Active Substance: CAPECITABINE
     Indication: HEPATIC CANCER
     Route: 065
  2. OXALIPLATIN. [Suspect]
     Active Substance: OXALIPLATIN
     Indication: HEPATIC CANCER
     Route: 065

REACTIONS (3)
  - Thrombocytopenia [Fatal]
  - Neutropenia [Fatal]
  - Haematotoxicity [Fatal]
